FAERS Safety Report 5908888-X (Version None)
Quarter: 2008Q4

REPORT INFORMATION
  Report Type: 
  Country: None (occurrence: None)
  Receive Date: 20081006
  Receipt Date: 20080925
  Transmission Date: 20090506
  Serious: Yes (Hospitalization)
  Sender: FDA-Public Use
  Company Number: ES-AVENTIS-200815262EU

PATIENT
  Sex: Female

DRUGS (3)
  1. FUROSEMIDE [Suspect]
     Route: 048
     Dates: start: 20070101, end: 20080801
  2. IBUPROFEN TABLETS [Suspect]
     Indication: POLYNEUROPATHY
     Route: 048
     Dates: start: 20080730, end: 20080801
  3. RENITEC                            /00574901/ [Suspect]
     Route: 048
     Dates: start: 20070101, end: 20080801

REACTIONS (3)
  - DRUG INTERACTION [None]
  - HYPERKALAEMIA [None]
  - RENAL FAILURE ACUTE [None]
